FAERS Safety Report 9233819 (Version 1)
Quarter: 2013Q2

REPORT INFORMATION
  Report Type: Spontaneous
  Country: FI (occurrence: FI)
  Receive Date: 20130416
  Receipt Date: 20130425
  Transmission Date: 20140414
  Serious: Yes (Other)
  Sender: FDA-Public Use
  Company Number: FI-PFIZER INC-2013112600

PATIENT
  Age: 81 Year
  Sex: Female

DRUGS (8)
  1. XANOR DEPOT [Suspect]
     Dosage: 0.5 MG, UNK
  2. XANOR DEPOT [Suspect]
     Dosage: 1 MG, UNK
  3. XANOR [Suspect]
     Dosage: UNK
  4. XANOR [Suspect]
     Dosage: 0.5 MG, 3X/DAY
  5. CIPRALEX [Suspect]
     Dosage: UNK
  6. NORVASC [Concomitant]
  7. SPIRIX [Concomitant]
  8. EMCONCOR [Concomitant]
     Dosage: 2.5 MG, UNK

REACTIONS (7)
  - Cardiac fibrillation [Recovered/Resolved]
  - Malaise [Unknown]
  - Tremor [Not Recovered/Not Resolved]
  - Nausea [Unknown]
  - Contusion [Unknown]
  - Swollen tongue [Unknown]
  - Oedema mouth [Unknown]
